FAERS Safety Report 16089162 (Version 1)
Quarter: 2019Q1

REPORT INFORMATION
  Report Type: Spontaneous
  Country: US (occurrence: US)
  Receive Date: 20190215
  Receipt Date: 20190215
  Transmission Date: 20190418
  Serious: No
  Sender: FDA-Public Use
  Company Number: None

PATIENT
  Age: 58 Year
  Sex: Female
  Weight: 90.26 kg

DRUGS (1)
  1. ORENCIA [Suspect]
     Active Substance: ABATACEPT
     Indication: RHEUMATOID ARTHRITIS
     Dosage: INFUSE 750MG INTRAVENOUSLY OVER 1 HOUR AT WEEK 0,2, AND 4 AS DIRECTED
     Route: 042
     Dates: start: 201807

REACTIONS (3)
  - Malaise [None]
  - Influenza [None]
  - Therapy cessation [None]
